FAERS Safety Report 21304475 (Version 1)
Quarter: 2022Q3

REPORT INFORMATION
  Report Type: Spontaneous
  Country: US (occurrence: None)
  Receive Date: 20220907
  Receipt Date: 20220907
  Transmission Date: 20221027
  Serious: No
  Sender: FDA-Public Use
  Company Number: US-ARIS GLOBAL-202108-1418

PATIENT
  Age: 76 Year
  Sex: Female

DRUGS (10)
  1. OXERVATE [Suspect]
     Active Substance: CENEGERMIN-BKBJ
     Indication: Product used for unknown indication
     Route: 047
     Dates: start: 20210811
  2. RESTASIS [Concomitant]
     Active Substance: CYCLOSPORINE
  3. ACETAMINOPHEN [Concomitant]
     Active Substance: ACETAMINOPHEN
  4. IMODIUM [Concomitant]
     Active Substance: LOPERAMIDE HYDROCHLORIDE
  5. GABAPENTIN [Concomitant]
     Active Substance: GABAPENTIN
  6. ROSUVASTATIN CALCIUM [Concomitant]
     Active Substance: ROSUVASTATIN CALCIUM
  7. FUROSEMIDE [Concomitant]
     Active Substance: FUROSEMIDE
  8. PREVACID [Concomitant]
     Active Substance: LANSOPRAZOLE
  9. SYNTHROID [Concomitant]
     Active Substance: LEVOTHYROXINE SODIUM
  10. STELARA [Concomitant]
     Active Substance: USTEKINUMAB

REACTIONS (7)
  - Eye pain [Unknown]
  - Diarrhoea [Unknown]
  - Asthenia [Unknown]
  - Product storage error [Unknown]
  - Eye irritation [Unknown]
  - Lacrimation increased [Unknown]
  - Eyelid ptosis [Unknown]
